FAERS Safety Report 23883626 (Version 1)
Quarter: 2024Q2

REPORT INFORMATION
  Report Type: Spontaneous
  Country: US (occurrence: US)
  Receive Date: 20240522
  Receipt Date: 20240522
  Transmission Date: 20240716
  Serious: No
  Sender: FDA-Public Use
  Company Number: US-002147023-NVSC2024US107460

PATIENT
  Sex: Female

DRUGS (1)
  1. VOTRIENT [Suspect]
     Active Substance: PAZOPANIB HYDROCHLORIDE
     Indication: Hereditary haemorrhagic telangiectasia
     Dosage: 200 MG (TAKE I TABLET BY MOUTH 3 TIMES A WEEK ON MONDAY, WEDNESDAY AND FRIDAY)
     Route: 048
     Dates: start: 202403

REACTIONS (1)
  - Alopecia [Unknown]
